FAERS Safety Report 13701757 (Version 1)
Quarter: 2017Q2

REPORT INFORMATION
  Report Type: Report from Study
  Country: CA (occurrence: CA)
  Receive Date: 20170629
  Receipt Date: 20170629
  Transmission Date: 20170830
  Serious: Yes (Other)
  Sender: FDA-Public Use
  Company Number: CA-JNJFOC-20170608805

PATIENT
  Age: 39 Year
  Sex: Female
  Weight: 68 kg

DRUGS (2)
  1. REMICADE [Suspect]
     Active Substance: INFLIXIMAB
     Indication: CROHN^S DISEASE
     Dosage: 21ST INFUSION, 5 MG/KG
     Route: 042
     Dates: start: 20170608
  2. REMICADE [Suspect]
     Active Substance: INFLIXIMAB
     Indication: CROHN^S DISEASE
     Route: 042
     Dates: start: 20141031

REACTIONS (7)
  - Incision site swelling [Recovered/Resolved]
  - General physical health deterioration [Unknown]
  - Off label use [Unknown]
  - Crohn^s disease [Not Recovered/Not Resolved]
  - Anal abscess [Recovered/Resolved]
  - Squamous cell carcinoma of skin [Not Recovered/Not Resolved]
  - Product use issue [Unknown]

NARRATIVE: CASE EVENT DATE: 20170607
